FAERS Safety Report 7075406-5 (Version None)
Quarter: 2010Q4

REPORT INFORMATION
  Report Type: 
  Country: None (occurrence: None)
  Receive Date: 20101030
  Receipt Date: 20100921
  Transmission Date: 20110411
  Serious: No
  Sender: FDA-Public Use
  Company Number: US-WYE-H16760810

PATIENT
  Sex: Female
  Weight: 63.56 kg

DRUGS (2)
  1. PRISTIQ [Suspect]
     Indication: DEPRESSION
     Dates: start: 20091201, end: 20100609
  2. PRISTIQ [Suspect]
     Dates: start: 20100610, end: 20100625

REACTIONS (7)
  - DISTURBANCE IN ATTENTION [None]
  - DIZZINESS [None]
  - DRUG EFFECT DECREASED [None]
  - DRUG WITHDRAWAL SYNDROME [None]
  - INFLUENZA LIKE ILLNESS [None]
  - NAUSEA [None]
  - THERAPEUTIC RESPONSE UNEXPECTED [None]
